FAERS Safety Report 9726448 (Version 2)
Quarter: 2013Q4

REPORT INFORMATION
  Report Type: Spontaneous
  Country: DE (occurrence: None)
  Receive Date: 20131129
  Receipt Date: 20131218
  Transmission Date: 20140711
  Serious: Yes (Other)
  Sender: FDA-Public Use
  Company Number: 2013MPI00758

PATIENT
  Age: 54 Year
  Sex: Male
  Weight: 65 kg

DRUGS (1)
  1. ADCETRIS (BRENTUXIMAB VEDOTIN) INJECTION [Suspect]
     Indication: HODGKIN^S DISEASE
     Dosage: INTRAVENOUS
     Route: 042
     Dates: start: 20130404, end: 20130815

REACTIONS (3)
  - Squamous cell carcinoma [None]
  - Laryngeal cancer [None]
  - Bronchial carcinoma [None]
